FAERS Safety Report 13284460 (Version 3)
Quarter: 2017Q2

REPORT INFORMATION
  Report Type: Spontaneous
  Country: US (occurrence: US)
  Receive Date: 20170301
  Receipt Date: 20170427
  Transmission Date: 20170830
  Serious: Yes (Other)
  Sender: FDA-Public Use
  Company Number: US-BAYER-2017-040007

PATIENT
  Age: 23 Year
  Sex: Female
  Weight: 56.69 kg

DRUGS (1)
  1. SKYLA [Suspect]
     Active Substance: LEVONORGESTREL
     Indication: CONTRACEPTION
     Dosage: 14 MCG/24HR, CONT
     Route: 015
     Dates: start: 20150407, end: 20160321

REACTIONS (3)
  - Drug ineffective [None]
  - Pelvic pain [None]
  - Ectopic pregnancy with contraceptive device [None]
